FAERS Safety Report 7436116 (Version 2)
Quarter: 2012Q4

REPORT INFORMATION
  Report Type: 
  Country: JP (occurrence: US)
  Receive Date: 20100625
  Receipt Date: 20121112
  Transmission Date: 20130627
  Serious: Yes (Hospitalization, Other)
  Sender: FDA-Public Use
  Company Number: US-JNJFOC-20100301924

PATIENT
  Sex: Male

DRUGS (7)
  1. LEVAQUIN [Suspect]
     Indication: BRONCHITIS
     Route: 048
  2. LEVAQUIN [Suspect]
     Indication: SINUSITIS
     Route: 048
  3. CORTISONE [Suspect]
     Indication: PAIN
     Route: 065
  4. NON STEROIDAL ANTI-INFLAMMATORY DRUGS [Suspect]
     Indication: PAIN
     Route: 065
  5. HYDROCORTISONE [Suspect]
     Indication: SKIN CANCER
     Route: 065
  6. MUPIROCIN [Concomitant]
     Indication: SKIN CANCER
     Route: 065
  7. AVAPRO [Concomitant]
     Indication: HYPERTENSION
     Route: 065
     Dates: start: 2005

REACTIONS (3)
  - Tendon rupture [Not Recovered/Not Resolved]
  - Rotator cuff syndrome [Recovering/Resolving]
  - Joint injury [Unknown]
